FAERS Safety Report 16459153 (Version 1)
Quarter: 2019Q2

REPORT INFORMATION
  Report Type: Report from Study
  Country: IT (occurrence: IT)
  Receive Date: 20190620
  Receipt Date: 20190620
  Transmission Date: 20190711
  Serious: Yes (Hospitalization, Other)
  Sender: FDA-Public Use
  Company Number: PHHY2019IT139768

PATIENT
  Age: 73 Year
  Sex: Female
  Weight: 56 kg

DRUGS (2)
  1. DABRAFENIB [Suspect]
     Active Substance: DABRAFENIB
     Indication: MALIGNANT MELANOMA
     Dosage: 300 MG, QD
     Route: 048
     Dates: start: 20180829, end: 20190531
  2. DABRAFENIB [Suspect]
     Active Substance: DABRAFENIB
     Dosage: 200 MG, QD
     Route: 048
     Dates: start: 20190611

REACTIONS (2)
  - Pyrexia [Recovered/Resolved]
  - Altered state of consciousness [Unknown]

NARRATIVE: CASE EVENT DATE: 20190601
